FAERS Safety Report 6003259-2 (Version None)
Quarter: 2008Q4

REPORT INFORMATION
  Report Type: 
  Country: None (occurrence: None)
  Receive Date: 20081212
  Receipt Date: 20081212
  Transmission Date: 20090506
  Serious: No
  Sender: FDA-Public Use
  Company Number: None

PATIENT
  Age: 52 Year
  Sex: Male
  Weight: 99.7913 kg

DRUGS (2)
  1. AZOR [Suspect]
     Indication: ARTERIOSCLEROSIS
     Dosage: 5MG/20MG 1TAB @ AM DAILY PO
     Route: 048
  2. AZOR [Suspect]
     Indication: HYPERTENSION
     Dosage: 5MG/20MG 1TAB @ AM DAILY PO
     Route: 048

REACTIONS (3)
  - DIZZINESS POSTURAL [None]
  - LIBIDO DECREASED [None]
  - PRURITUS [None]
